FAERS Safety Report 8219788-7 (Version None)
Quarter: 2012Q1

REPORT INFORMATION
  Report Type: 
  Country: None (occurrence: None)
  Receive Date: 20120319
  Receipt Date: 20120309
  Transmission Date: 20120608
  Serious: Yes (Other)
  Sender: FDA-Public Use
  Company Number: US-ASTRAZENECA-2012SE16814

PATIENT
  Age: 74 Year
  Sex: Female

DRUGS (2)
  1. FASLODEX [Suspect]
     Indication: METASTASES TO BONE
     Route: 030
  2. FASLODEX [Suspect]
     Indication: METASTASES TO CENTRAL NERVOUS SYSTEM
     Route: 030

REACTIONS (3)
  - NERVOUS SYSTEM DISORDER [None]
  - NAUSEA [None]
  - TUMOUR FLARE [None]
